FAERS Safety Report 16416765 (Version 4)
Quarter: 2020Q1

REPORT INFORMATION
  Report Type: Report from Study
  Country: US (occurrence: US)
  Receive Date: 20190611
  Receipt Date: 20200103
  Transmission Date: 20200409
  Serious: Yes (Hospitalization, Other)
  Sender: FDA-Public Use
  Company Number: US-AMGEN-USASP2019089522

PATIENT
  Age: 57 Year
  Sex: Male

DRUGS (3)
  1. REPATHA [Suspect]
     Active Substance: EVOLOCUMAB
     Indication: BLOOD CHOLESTEROL INCREASED
  2. REPATHA [Suspect]
     Active Substance: EVOLOCUMAB
     Indication: HYPERCHOLESTEROLAEMIA
     Dosage: 140 MILLIGRAM, Q2WK
     Route: 065
  3. REPATHA [Suspect]
     Active Substance: EVOLOCUMAB
     Indication: HYPERLIPIDAEMIA
     Dosage: 140 MILLIGRAM, Q2WK
     Route: 065
     Dates: start: 2017

REACTIONS (10)
  - Rash [Unknown]
  - Product storage error [Unknown]
  - Coronary artery occlusion [Unknown]
  - Feeling abnormal [Recovered/Resolved]
  - Fall [Unknown]
  - Erythema [Unknown]
  - Myocardial infarction [Unknown]
  - Skin erosion [Unknown]
  - Dementia [Unknown]
  - Dizziness [Unknown]

NARRATIVE: CASE EVENT DATE: 20190515
